FAERS Safety Report 8598538-9 (Version None)
Quarter: 2012Q3

REPORT INFORMATION
  Report Type: 
  Country: None (occurrence: None)
  Receive Date: 20120816
  Receipt Date: 20120808
  Transmission Date: 20120928
  Serious: Yes (Hospitalization)
  Sender: FDA-Public Use
  Company Number: US-BAYER-2012-081452

PATIENT
  Age: 30 Year
  Sex: Female
  Weight: 52.608 kg

DRUGS (4)
  1. DROSPIRENONE AND ETHINYL ESTRADIOL [Suspect]
  2. YASMIN [Suspect]
  3. ASCORBIC ACID [Concomitant]
  4. MOTRIN [Concomitant]
     Indication: PAIN IN EXTREMITY

REACTIONS (2)
  - PULMONARY EMBOLISM [None]
  - DEEP VEIN THROMBOSIS [None]
